FAERS Safety Report 14600286 (Version 3)
Quarter: 2019Q2

REPORT INFORMATION
  Report Type: Spontaneous
  Country: US (occurrence: US)
  Receive Date: 20180305
  Receipt Date: 20190510
  Transmission Date: 20190711
  Serious: Yes (Hospitalization)
  Sender: FDA-Public Use
  Company Number: US-TEVA-2018-US-866504

PATIENT
  Age: 63 Year
  Sex: Female

DRUGS (1)
  1. CISPLATIN. [Suspect]
     Active Substance: CISPLATIN
     Indication: ENDOMETRIAL CANCER STAGE III
     Dosage: COMPLETED 9 CYCLES
     Route: 065

REACTIONS (9)
  - Renal tubular dysfunction [Unknown]
  - Orthostatic hypotension [Unknown]
  - Blood potassium decreased [Recovering/Resolving]
  - Hypomagnesaemia [Not Recovered/Not Resolved]
  - Toxicity to various agents [Recovered/Resolved]
  - Tremor [Unknown]
  - Fanconi syndrome acquired [Recovered/Resolved]
  - Blood phosphorus decreased [Recovering/Resolving]
  - Blood calcium decreased [Recovering/Resolving]
